FAERS Safety Report 9357957 (Version 1)
Quarter: 2013Q2

REPORT INFORMATION
  Report Type: Spontaneous
  Country: US (occurrence: US)
  Receive Date: 20130620
  Receipt Date: 20130620
  Transmission Date: 20140414
  Serious: Yes (Other)
  Sender: FDA-Public Use
  Company Number: US-BAYER-2013-075331

PATIENT
  Age: 60 Year
  Sex: Male
  Weight: 83.9 kg

DRUGS (3)
  1. ALEVE CAPLET [Suspect]
     Dosage: 2 DF, QD
     Route: 048
     Dates: start: 20130609, end: 20130613
  2. ADVIL [Concomitant]
  3. OMEPRAZOLE [Concomitant]

REACTIONS (1)
  - Urinary retention [Not Recovered/Not Resolved]
